FAERS Safety Report 9661799 (Version 2)
Quarter: 2013Q4

REPORT INFORMATION
  Report Type: Spontaneous
  Country: US (occurrence: US)
  Receive Date: 20131031
  Receipt Date: 20131031
  Transmission Date: 20140711
  Serious: No
  Sender: FDA-Public Use
  Company Number: US-PURDUE-USA-2010-0047321

PATIENT
  Sex: Female

DRUGS (1)
  1. OXYCONTIN (NDA 22-272) [Suspect]
     Indication: PRODUCT USED FOR UNKNOWN INDICATION
     Dosage: 60 MG, BID

REACTIONS (5)
  - Drug withdrawal syndrome [Unknown]
  - Foreign body [Unknown]
  - Chills [Unknown]
  - Hyperhidrosis [Unknown]
  - Diarrhoea [Unknown]
